FAERS Safety Report 21445274 (Version 1)
Quarter: 2022Q4

REPORT INFORMATION
  Report Type: Spontaneous
  Country: US (occurrence: US)
  Receive Date: 20221012
  Receipt Date: 20221012
  Transmission Date: 20230113
  Serious: No
  Sender: FDA-Public Use
  Company Number: US-drreddys-SPO/USA/22/0155400

PATIENT
  Age: 34 Year
  Sex: Male

DRUGS (1)
  1. ZIPRASIDONE [Suspect]
     Active Substance: ZIPRASIDONE
     Indication: Schizophrenia

REACTIONS (3)
  - Facial discomfort [Unknown]
  - Excessive eye blinking [Unknown]
  - Jaw clicking [Unknown]
